FAERS Safety Report 25653146 (Version 2)
Quarter: 2025Q3

REPORT INFORMATION
  Report Type: Report from Study
  Country: CA (occurrence: CA)
  Receive Date: 20250807
  Receipt Date: 20250827
  Transmission Date: 20251021
  Serious: Yes (Hospitalization)
  Sender: ALEXION PHARMACEUTICALS
  Company Number: CA-AstraZeneca-CH-00925259A

PATIENT
  Sex: Male
  Weight: 67.12 kg

DRUGS (6)
  1. TEZEPELUMAB [Suspect]
     Active Substance: TEZEPELUMAB
  2. TEZEPELUMAB [Suspect]
     Active Substance: TEZEPELUMAB
  3. PULMICORT TURBUHALER [Concomitant]
     Active Substance: BUDESONIDE
  4. SINGULAIR [Concomitant]
     Active Substance: MONTELUKAST SODIUM
     Dosage: 10 MILLIGRAM, QD
  5. VENTOLIN [Concomitant]
     Active Substance: ALBUTEROL SULFATE
  6. BREZTRI [Concomitant]
     Active Substance: BUDESONIDE\FORMOTEROL\GLYCOPYRROLATE

REACTIONS (2)
  - Nephrolithiasis [Not Recovered/Not Resolved]
  - Inappropriate schedule of product administration [Unknown]
